FAERS Safety Report 6817116-2 (Version None)
Quarter: 2010Q3

REPORT INFORMATION
  Report Type: 
  Country: None (occurrence: None)
  Receive Date: 20100706
  Receipt Date: 20100623
  Transmission Date: 20110219
  Serious: Yes (Hospitalization)
  Sender: FDA-Public Use
  Company Number: PHFR2010GB01077

PATIENT
  Sex: Female

DRUGS (1)
  1. CLOZARIL [Suspect]
     Indication: SCHIZOPHRENIA
     Dosage: 750MG DAILY
     Route: 048
     Dates: start: 20030527

REACTIONS (6)
  - BLOOD POTASSIUM DECREASED [None]
  - BODY DYSMORPHIC DISORDER [None]
  - CIRCULATORY COLLAPSE [None]
  - NEUTROPHIL COUNT DECREASED [None]
  - STARVATION [None]
  - WHITE BLOOD CELL COUNT DECREASED [None]
